FAERS Safety Report 9745458 (Version 2)
Quarter: 2014Q1

REPORT INFORMATION
  Report Type: Report from Study
  Country: PL (occurrence: PL)
  Receive Date: 20131211
  Receipt Date: 20140305
  Transmission Date: 20141002
  Serious: Yes (Hospitalization)
  Sender: FDA-Public Use
  Company Number: PL-ROCHE-1316231

PATIENT
  Age: 82 Year
  Sex: Female

DRUGS (7)
  1. RITUXIMAB [Suspect]
     Indication: SPLENIC MARGINAL ZONE LYMPHOMA
     Route: 042
     Dates: start: 20080526, end: 20081222
  2. RITUXIMAB [Suspect]
     Dosage: MAINTENANCE THERAPY
     Route: 042
     Dates: start: 20090201, end: 20101209
  3. CYCLOPHOSPHAMIDE [Suspect]
     Indication: SPLENIC MARGINAL ZONE LYMPHOMA
     Route: 065
     Dates: start: 20080526, end: 20081222
  4. VINCRISTINE [Suspect]
     Indication: SPLENIC MARGINAL ZONE LYMPHOMA
     Route: 065
     Dates: start: 20080526, end: 20081222
  5. PREDNISOLONE [Suspect]
     Indication: SPLENIC MARGINAL ZONE LYMPHOMA
     Route: 065
  6. INSULIN [Concomitant]
  7. MIXTARD [Concomitant]

REACTIONS (1)
  - Bladder transitional cell carcinoma [Not Recovered/Not Resolved]
